FAERS Safety Report 16242923 (Version 2)
Quarter: 2019Q3

REPORT INFORMATION
  Report Type: Spontaneous
  Country: US (occurrence: US)
  Receive Date: 20190426
  Receipt Date: 20190912
  Transmission Date: 20191004
  Serious: Yes (Hospitalization, Other)
  Sender: FDA-Public Use
  Company Number: US-PFIZER INC-2019181150

PATIENT
  Age: 28 Year
  Sex: Male

DRUGS (20)
  1. OXCARBAZEPINE. [Concomitant]
     Active Substance: OXCARBAZEPINE
     Indication: BIPOLAR DISORDER
     Dosage: UNK
     Dates: start: 20150513
  2. MENS ONE A DAY VITAMIN [Concomitant]
     Indication: ROUTINE HEALTH MAINTENANCE
     Dosage: UNK
     Dates: start: 2014
  3. GLYCOPYRROLATE. [Concomitant]
     Active Substance: GLYCOPYRROLATE
     Indication: TEMPERATURE INTOLERANCE
     Dosage: UNK
     Dates: start: 2019
  4. PROTONIX [Suspect]
     Active Substance: PANTOPRAZOLE SODIUM
     Indication: NAUSEA
     Dosage: UNK
     Dates: end: 2017
  5. OMEPRAZOLE. [Suspect]
     Active Substance: OMEPRAZOLE
     Indication: GASTROOESOPHAGEAL REFLUX DISEASE
  6. TUMS [Concomitant]
     Active Substance: CALCIUM CARBONATE
     Dosage: UNK, 2X/DAY (AS NEEDED)
     Dates: start: 2013
  7. DEXILANT [Suspect]
     Active Substance: DEXLANSOPRAZOLE
     Indication: NAUSEA
     Dosage: UNK
     Dates: end: 2017
  8. ZANTAC 75 (OTC) [Concomitant]
     Dosage: UNK
     Dates: start: 2016, end: 2017
  9. TUMS [Concomitant]
     Active Substance: CALCIUM CARBONATE
     Indication: ANTACID THERAPY
     Dosage: UNK, AS NEEDED
     Dates: start: 2008
  10. PROTONIX [Suspect]
     Active Substance: PANTOPRAZOLE SODIUM
     Indication: GASTROOESOPHAGEAL REFLUX DISEASE
  11. DEXILANT [Suspect]
     Active Substance: DEXLANSOPRAZOLE
     Indication: GASTROOESOPHAGEAL REFLUX DISEASE
     Dosage: 60 MG, 1X/DAY
     Dates: start: 20160204, end: 201702
  12. DEXILANT [Suspect]
     Active Substance: DEXLANSOPRAZOLE
     Dosage: 30 MG, 1X/DAY
     Dates: start: 20170412, end: 201711
  13. OMEPRAZOLE. [Suspect]
     Active Substance: OMEPRAZOLE
     Indication: NAUSEA
     Dosage: 20 MG, 2X/DAY
  14. TYLENOL WITH CODEINE [Concomitant]
     Active Substance: ACETAMINOPHEN\CODEINE PHOSPHATE
     Indication: PAIN
     Dosage: UNK
     Dates: start: 2014
  15. ESCITALOPRAM [Concomitant]
     Active Substance: ESCITALOPRAM OXALATE
     Indication: DEPRESSION
     Dosage: UNK
     Dates: start: 20140612
  16. PROZOSIN [Concomitant]
     Indication: NIGHTMARE
     Dosage: UNK
     Dates: start: 2019
  17. LISINOPRIL. [Concomitant]
     Active Substance: LISINOPRIL
     Indication: BLOOD PRESSURE ABNORMAL
     Dosage: UNK
     Dates: start: 20151207
  18. HYDROCHLOROTHIAZIDE. [Concomitant]
     Active Substance: HYDROCHLOROTHIAZIDE
     Indication: FLUID RETENTION
     Dosage: UNK
     Dates: start: 20170625
  19. PANTOPRAZOLE [Suspect]
     Active Substance: PANTOPRAZOLE
     Indication: NAUSEA
     Dosage: 40 MG, 1X/DAY
     Dates: end: 201511
  20. PANTOPRAZOLE [Suspect]
     Active Substance: PANTOPRAZOLE
     Indication: GASTROOESOPHAGEAL REFLUX DISEASE
     Dosage: 40 MG, 1X/DAY
     Dates: start: 20151201, end: 201704

REACTIONS (3)
  - Renal failure [Unknown]
  - Acute kidney injury [Not Recovered/Not Resolved]
  - Kidney fibrosis [Unknown]

NARRATIVE: CASE EVENT DATE: 20141020
